FAERS Safety Report 7573276-X (Version None)
Quarter: 2011Q2

REPORT INFORMATION
  Report Type: 
  Country: None (occurrence: None)
  Receive Date: 20110627
  Receipt Date: 20110613
  Transmission Date: 20111010
  Serious: Yes (Hospitalization, Disabling, Other)
  Sender: FDA-Public Use
  Company Number: PHHY2011US46105

PATIENT
  Sex: Female
  Weight: 72.562 kg

DRUGS (9)
  1. DOCUSATE SODIUM [Concomitant]
     Dosage: 100 MG,
     Route: 048
  2. ASPIRIN [Concomitant]
     Dosage: 81 MG, QD
     Route: 048
  3. EVOXAC [Concomitant]
     Dosage: 30 MG, QD
  4. OMEPRAZOLE [Concomitant]
     Dosage: 20 MG, BID
     Route: 048
  5. GABAPENTIN [Concomitant]
     Dosage: 100 MG,
     Route: 048
  6. MIRTAZAPINE [Concomitant]
     Dosage: 15 MG, QD
     Route: 048
  7. RECLAST [Suspect]
     Indication: OSTEOPOROSIS POSTMENOPAUSAL
     Dosage: 5 MG/100 ML
     Route: 042
     Dates: start: 20110502
  8. CYMBALTA [Concomitant]
     Dosage: 60 MG, QD
     Route: 048
  9. SINGULAIR [Concomitant]
     Dosage: 10 MG,

REACTIONS (1)
  - CARDIAC FAILURE CONGESTIVE [None]
